FAERS Safety Report 9132948 (Version 1)
Quarter: 2013Q1

REPORT INFORMATION
  Report Type: Spontaneous
  Country: FR (occurrence: FR)
  Receive Date: 20130301
  Receipt Date: 20130301
  Transmission Date: 20140127
  Serious: Yes (Hospitalization)
  Sender: FDA-Public Use
  Company Number: FR-PFIZER INC-2013068852

PATIENT
  Age: 84 Year
  Sex: Female

DRUGS (17)
  1. ZITHROMAX [Suspect]
     Indication: COUGH
     Dosage: UNK
     Route: 048
     Dates: start: 20130129, end: 20130205
  2. ZITHROMAX [Suspect]
     Indication: PYREXIA
  3. CLAMOXYL [Suspect]
     Indication: COUGH
     Dosage: 500 MG, 2X/DAY
     Route: 048
     Dates: start: 20130127, end: 20130129
  4. CLAMOXYL [Suspect]
     Indication: PYREXIA
  5. AUGMENTIN [Suspect]
     Indication: COUGH
     Dosage: UNK
     Dates: start: 20130129, end: 20130205
  6. AUGMENTIN [Suspect]
     Indication: PYREXIA
  7. KARDEGIC [Concomitant]
     Dosage: 75 MG
  8. CELECTOL [Concomitant]
     Dosage: 200 MG
  9. APROVEL [Concomitant]
     Dosage: 75 MG
  10. ZOCOR [Concomitant]
  11. LASILIX [Concomitant]
  12. IKOREL [Concomitant]
  13. MOPRAL [Concomitant]
  14. IXPRIM [Concomitant]
  15. DAFALGAN [Concomitant]
  16. LEXOMIL [Concomitant]
  17. ACTONEL [Concomitant]

REACTIONS (1)
  - Agranulocytosis [Recovering/Resolving]
